FAERS Safety Report 11299995 (Version 1)
Quarter: 2015Q3

REPORT INFORMATION
  Report Type: Spontaneous
  Country: US (occurrence: US)
  Receive Date: 20150722
  Receipt Date: 20150722
  Transmission Date: 20151125
  Serious: No
  Sender: FDA-Public Use
  Company Number: US-ELI_LILLY_AND_COMPANY-US201212006049

PATIENT
  Sex: Male
  Weight: 36.9 kg

DRUGS (1)
  1. HUMATROPE [Suspect]
     Active Substance: SOMATROPIN
     Indication: GROWTH HORMONE DEFICIENCY
     Dosage: 2.8 MG, EACH EVENING
     Route: 058
     Dates: start: 20071227, end: 20121105

REACTIONS (1)
  - Chest pain [Recovered/Resolved]
